FAERS Safety Report 7072023-8 (Version None)
Quarter: 2010Q4

REPORT INFORMATION
  Report Type: 
  Country: None (occurrence: None)
  Receive Date: 20101029
  Receipt Date: 20091123
  Transmission Date: 20110411
  Serious: No
  Sender: FDA-Public Use
  Company Number: A0823490A

PATIENT
  Age: 64 Year
  Sex: Female

DRUGS (3)
  1. ADVAIR DISKUS 100/50 [Suspect]
     Indication: ASTHMA
     Dosage: 1PUFF TWICE PER DAY
     Route: 055
     Dates: start: 20091120, end: 20091122
  2. SINGULAIR [Suspect]
     Indication: PRODUCT USED FOR UNKNOWN INDICATION
     Route: 065
     Dates: start: 20091120
  3. SYNTHROID [Concomitant]

REACTIONS (8)
  - APHONIA [None]
  - DYSPHONIA [None]
  - GLOSSITIS [None]
  - MIGRAINE [None]
  - MYALGIA [None]
  - PHARYNGEAL DISORDER [None]
  - SPEECH DISORDER [None]
  - WHEEZING [None]
